FAERS Safety Report 9002058 (Version 2)
Quarter: 2013Q1

REPORT INFORMATION
  Report Type: Spontaneous
  Country: AU (occurrence: AU)
  Receive Date: 20130107
  Receipt Date: 20130124
  Transmission Date: 20140127
  Serious: Yes (Other)
  Sender: FDA-Public Use
  Company Number: AU-NAPPMUNDI-USA-2012-0097279

PATIENT
  Age: 78 Year
  Sex: Female

DRUGS (2)
  1. NORSPAN [Suspect]
     Indication: BACK PAIN
     Dosage: 5 MCG, Q1H
     Route: 062
     Dates: start: 201211
  2. MADOPAR [Concomitant]
     Indication: PARKINSON^S DISEASE
     Dosage: UNK
     Dates: start: 201210

REACTIONS (2)
  - Cyanosis [Recovered/Resolved]
  - Loss of consciousness [Recovered/Resolved]
